FAERS Safety Report 9696207 (Version 1)
Quarter: 2013Q4

REPORT INFORMATION
  Report Type: Report from Study
  Country: US (occurrence: US)
  Receive Date: 20131119
  Receipt Date: 20131119
  Transmission Date: 20140711
  Serious: Yes (Other)
  Sender: FDA-Public Use
  Company Number: PHEH2013US024068

PATIENT
  Age: 78 Year
  Sex: Male
  Weight: 98.87 kg

DRUGS (16)
  1. ZOMETA [Suspect]
     Dosage: 04MG/05ML VIAL
  2. DIGOXIN [Concomitant]
     Dosage: 0.125 MG
  3. PHOSPHA 250 NEUTRA [Concomitant]
     Dosage: 250 MG
  4. MAG 2//MAGNESIUM CARBONATE [Concomitant]
     Dosage: 300 MG
  5. POTASSIUM [Concomitant]
     Dosage: 75 MG
  6. VIT D [Concomitant]
     Dosage: 1000 U
  7. PAROXETINE [Concomitant]
     Dosage: 10 MG
  8. GLYBURIDE [Concomitant]
     Dosage: 2.5 MG
  9. ALLOPURINOL [Concomitant]
     Dosage: 300 MG
  10. WARFARIN [Concomitant]
     Dosage: 10 MG
  11. ATENOLOL [Concomitant]
     Dosage: 25 MG
  12. AVAPRO [Concomitant]
     Dosage: 150 MG
  13. IRON [Concomitant]
     Dosage: 50 MG
  14. CENTRUM [Concomitant]
     Dosage: UNK UKN, UNK
  15. REVLIMID [Concomitant]
     Dosage: 10 MG
  16. PROTONIX [Concomitant]
     Dosage: 20 MG

REACTIONS (1)
  - Subcutaneous abscess [Recovered/Resolved]
